FAERS Safety Report 25787567 (Version 1)
Quarter: 2025Q3

REPORT INFORMATION
  Report Type: Spontaneous
  Country: US (occurrence: None)
  Receive Date: 20250909
  Receipt Date: 20250909
  Transmission Date: 20251021
  Serious: No
  Sender: FDA-CTU
  Company Number: None

PATIENT
  Age: 67 Year
  Sex: Male
  Weight: 87.3 kg

DRUGS (14)
  1. DIETARY SUPPLEMENT [Suspect]
     Active Substance: DIETARY SUPPLEMENT
     Indication: Weight control
     Dates: start: 20250829, end: 20250908
  2. DIETARY SUPPLEMENT [Suspect]
     Active Substance: DIETARY SUPPLEMENT
     Indication: Muscle disorder
  3. DEVICE [Suspect]
     Active Substance: DEVICE
     Indication: Alopecia
     Route: 058
     Dates: start: 20250221
  4. XARELTO [Suspect]
     Active Substance: RIVAROXABAN
  5. TIRZEPATIDE [Suspect]
     Active Substance: TIRZEPATIDE
  6. SERMORELIN [Suspect]
     Active Substance: SERMORELIN
  7. GLUTATHIONE [Suspect]
     Active Substance: GLUTATHIONE
  8. DIETARY SUPPLEMENT [Suspect]
     Active Substance: DIETARY SUPPLEMENT
  9. ATORVASTATIN [Concomitant]
     Active Substance: ATORVASTATIN
  10. ALLOPURINOL [Concomitant]
     Active Substance: ALLOPURINOL
  11. ZEPBOUND [Concomitant]
     Active Substance: TIRZEPATIDE
  12. magnesium glycinae [Concomitant]
  13. magnesium cirate [Concomitant]
  14. VITAMINS [Concomitant]
     Active Substance: VITAMINS

REACTIONS (3)
  - Haematochezia [None]
  - Blood urine present [None]
  - Drug ineffective [None]

NARRATIVE: CASE EVENT DATE: 20250908
